FAERS Safety Report 8244355-9 (Version None)
Quarter: 2012Q1

REPORT INFORMATION
  Report Type: 
  Country: None (occurrence: None)
  Receive Date: 20120329
  Receipt Date: 20120327
  Transmission Date: 20120608
  Serious: Yes (Other)
  Sender: FDA-Public Use
  Company Number: US-PFIZER INC-2012043731

PATIENT
  Sex: Male
  Weight: 89.796 kg

DRUGS (8)
  1. VALIUM [Concomitant]
     Indication: DEPRESSION
     Dosage: UNK, DAILY (AT NIGHT)
  2. CELEBREX [Concomitant]
     Indication: ARTHRITIS
     Dosage: 200 MG, DAILY
  3. CHANTIX [Suspect]
     Indication: SMOKING CESSATION THERAPY
     Dosage: UNK
  4. VIAGRA [Concomitant]
     Dosage: UNK, AS NEEDED
  5. CHANTIX [Suspect]
     Dosage: UNK
     Dates: start: 20120101, end: 20120101
  6. CHANTIX [Suspect]
     Dosage: UNK
     Dates: start: 20120101, end: 20120101
  7. OXYCODONE [Concomitant]
     Dosage: UNK, 4X/DAY
  8. LACTULOSE [Concomitant]
     Indication: CONSTIPATION
     Dosage: UNK
     Route: 048

REACTIONS (6)
  - SINUSITIS [None]
  - DRY MOUTH [None]
  - SINUS DISORDER [None]
  - COUGH [None]
  - MUCOUS MEMBRANE DISORDER [None]
  - DYSPNOEA [None]
